FAERS Safety Report 7083568-9 (Version None)
Quarter: 2010Q4

REPORT INFORMATION
  Report Type: 
  Country: None (occurrence: None)
  Receive Date: 20101104
  Receipt Date: 20101019
  Transmission Date: 20110411
  Serious: No
  Sender: FDA-Public Use
  Company Number: US-BAYER-201037667NA

PATIENT
  Age: 30 Year
  Sex: Male

DRUGS (1)
  1. MAGNEVIST [Suspect]
     Indication: NUCLEAR MAGNETIC RESONANCE IMAGING BRAIN
     Dosage: AS USED: 30  ML  UNIT DOSE: 50 ML
     Route: 042
     Dates: start: 20101019, end: 20101019

REACTIONS (5)
  - DYSPNOEA [None]
  - NASAL CONGESTION [None]
  - PRURITUS [None]
  - RASH MACULAR [None]
  - SNEEZING [None]
